FAERS Safety Report 23381877 (Version 2)
Quarter: 2024Q1

REPORT INFORMATION
  Report Type: Spontaneous
  Country: CZ (occurrence: CZ)
  Receive Date: 20240109
  Receipt Date: 20240123
  Transmission Date: 20240410
  Serious: Yes (Hospitalization, Other)
  Sender: FDA-Public Use
  Company Number: CZ-009507513-2401CZE004523

PATIENT
  Sex: Female

DRUGS (1)
  1. KEYTRUDA [Suspect]
     Active Substance: PEMBROLIZUMAB
     Indication: Malignant melanoma
     Dosage: 200 MILLIGRAM, Q3W
     Dates: start: 20231017, end: 20231128

REACTIONS (27)
  - Immune-mediated myocarditis [Recovering/Resolving]
  - Immune-mediated myositis [Recovering/Resolving]
  - Haemolysis [Unknown]
  - Blood chloride abnormal [Unknown]
  - Blood calcium abnormal [Unknown]
  - Calcium ionised abnormal [Unknown]
  - Blood magnesium abnormal [Unknown]
  - Blood urea abnormal [Unknown]
  - Glomerular filtration rate abnormal [Unknown]
  - Aspartate aminotransferase abnormal [Unknown]
  - Gamma-glutamyltransferase abnormal [Unknown]
  - Blood uric acid abnormal [Unknown]
  - Blood glucose abnormal [Unknown]
  - Blood thyroid stimulating hormone abnormal [Unknown]
  - Haemoglobin abnormal [Unknown]
  - Haematocrit abnormal [Unknown]
  - Blood lactate dehydrogenase abnormal [Unknown]
  - High density lipoprotein abnormal [Unknown]
  - Blood triglycerides abnormal [Unknown]
  - White blood cell disorder [Unknown]
  - Red blood cell abnormality [Unknown]
  - Neutrophil count abnormal [Unknown]
  - Neutrophil percentage abnormal [Unknown]
  - Monocyte count abnormal [Unknown]
  - Monocyte percentage abnormal [Unknown]
  - Lymphocyte percentage abnormal [Unknown]
  - Granulocytes abnormal [Unknown]

NARRATIVE: CASE EVENT DATE: 20230101
